FAERS Safety Report 21727278 (Version 1)
Quarter: 2022Q4

REPORT INFORMATION
  Report Type: Spontaneous
  Country: US (occurrence: US)
  Receive Date: 20221214
  Receipt Date: 20221214
  Transmission Date: 20230112
  Serious: No
  Sender: FDA-Public Use
  Company Number: US-BAYER-2022P025446

PATIENT
  Age: 39 Year
  Sex: Female

DRUGS (3)
  1. MIRENA [Suspect]
     Active Substance: LEVONORGESTREL
     Indication: Dermatitis atopic
     Dosage: 20?G/DAY
     Route: 015
     Dates: start: 202205
  2. MIRENA [Suspect]
     Active Substance: LEVONORGESTREL
     Indication: Intra-uterine contraceptive device insertion
  3. DUPIXENT [Concomitant]
     Active Substance: DUPILUMAB

REACTIONS (2)
  - Chronic sinusitis [None]
  - Asthenopia [None]

NARRATIVE: CASE EVENT DATE: 20220101
